FAERS Safety Report 18376198 (Version 2)
Quarter: 2020Q4

REPORT INFORMATION
  Report Type: Report from Study
  Country: US (occurrence: US)
  Receive Date: 20201013
  Receipt Date: 20201102
  Transmission Date: 20210114
  Serious: Yes (Life-Threatening, Hospitalization, Other)
  Sender: FDA-Public Use
  Company Number: NVSC2020US272015

PATIENT
  Age: 34 Year
  Sex: Female
  Weight: 96 kg

DRUGS (3)
  1. ENTRESTO [Suspect]
     Active Substance: SACUBITRIL\VALSARTAN
     Dosage: 100 MG, BID (49/51 MG, 1 TABLET)
     Route: 048
     Dates: start: 20200311
  2. LASIX [Concomitant]
     Active Substance: FUROSEMIDE
     Indication: PRODUCT USED FOR UNKNOWN INDICATION
     Dosage: UNK
     Route: 065
  3. ENTRESTO [Suspect]
     Active Substance: SACUBITRIL\VALSARTAN
     Indication: CARDIAC FAILURE
     Dosage: 100 MG, BID (49/51 MG)
     Route: 048
     Dates: start: 20190726

REACTIONS (15)
  - Chest pain [Unknown]
  - Dyspnoea [Unknown]
  - Right atrial enlargement [Unknown]
  - Weight increased [Unknown]
  - Left atrial enlargement [Unknown]
  - Fatigue [Unknown]
  - Thrombosis [Unknown]
  - Lung disorder [Unknown]
  - Angina pectoris [Unknown]
  - Coagulopathy [Unknown]
  - Pulmonary embolism [Unknown]
  - Asthenia [Unknown]
  - Cough [Unknown]
  - Weight decreased [Unknown]
  - Cardiac discomfort [Unknown]

NARRATIVE: CASE EVENT DATE: 20190726
